FAERS Safety Report 16973280 (Version 6)
Quarter: 2019Q4

REPORT INFORMATION
  Report Type: Report from Study
  Country: IT (occurrence: IT)
  Receive Date: 20191030
  Receipt Date: 20191210
  Transmission Date: 20200122
  Serious: Yes (Hospitalization)
  Sender: FDA-Public Use
  Company Number: IT-ROCHE-2451048

PATIENT
  Age: 60 Year
  Sex: Male

DRUGS (12)
  1. PAROXETINA [PAROXETINE] [Concomitant]
     Indication: MAJOR DEPRESSION
     Route: 048
     Dates: end: 20190611
  2. PREDNISONE. [Concomitant]
     Active Substance: PREDNISONE
     Route: 048
     Dates: start: 20190925
  3. OXYGEN. [Concomitant]
     Active Substance: OXYGEN
     Indication: PNEUMONIA
     Route: 065
     Dates: start: 20191021
  4. ISAVUCONAZONIUM [Concomitant]
     Active Substance: ISAVUCONAZONIUM
     Route: 042
     Dates: start: 20191023
  5. LANSOPRAZOLE. [Concomitant]
     Active Substance: LANSOPRAZOLE
     Route: 048
  6. ISAVUCONAZONIUM [Concomitant]
     Active Substance: ISAVUCONAZONIUM
     Indication: PNEUMONIA
     Route: 042
     Dates: start: 20191021, end: 20191022
  7. MEROPENEM. [Concomitant]
     Active Substance: MEROPENEM
     Indication: PNEUMONIA
     Route: 042
     Dates: start: 20191021
  8. ATEZOLIZUMAB. [Suspect]
     Active Substance: ATEZOLIZUMAB
     Indication: MALIGNANT MELANOMA
     Dosage: ON 23/AUG/2019 AT 13.55, AND 10/SEP/2019 AT 13.55-LAST DOSE OF ATEZOLIZUMAB (840 MG) PRIOR TO SAE ON
     Route: 042
     Dates: start: 20190701
  9. COBIMETINIB. [Suspect]
     Active Substance: COBIMETINIB
     Indication: MALIGNANT MELANOMA
     Dosage: ON 23/AUG/2019 AND 24/SEP/2019, LAST DOSE OF COBIMETINIB (60 MG) PRIOR TO SAE ONSET OF PULMONARY EMB
     Route: 048
     Dates: start: 20190514
  10. DEXAMETHASONE. [Concomitant]
     Active Substance: DEXAMETHASONE
     Route: 030
  11. LINEZOLID. [Concomitant]
     Active Substance: LINEZOLID
     Indication: PNEUMONIA
     Route: 042
     Dates: start: 20191021
  12. VEMURAFENIB. [Suspect]
     Active Substance: VEMURAFENIB
     Indication: MALIGNANT MELANOMA
     Dosage: ON 23/AUG/2019 AND 24/SEP/2019, LAST DOSE OF VEMURAFENIB (480 MG AND 720 MG) PRIOR TO SAE ONSET OF P
     Route: 048
     Dates: start: 20190514

REACTIONS (3)
  - Myositis [Not Recovered/Not Resolved]
  - Pulmonary embolism [Recovered/Resolved]
  - Pneumonitis [Not Recovered/Not Resolved]

NARRATIVE: CASE EVENT DATE: 20190829
